FAERS Safety Report 23354230 (Version 1)
Quarter: 2024Q1

REPORT INFORMATION
  Report Type: Spontaneous
  Country: NL (occurrence: NL)
  Receive Date: 20240101
  Receipt Date: 20240101
  Transmission Date: 20240410
  Serious: Yes (Hospitalization)
  Sender: FDA-Public Use
  Company Number: NL-LRB-00896792

PATIENT
  Age: 60 Year
  Sex: Female
  Weight: 41 kg

DRUGS (1)
  1. LOPERAMIDE [Suspect]
     Active Substance: LOPERAMIDE
     Indication: Ileostomy
     Dosage: 2 MILLIGRAM, EVERY FOUR HOUR
     Route: 065
     Dates: start: 20230501, end: 20230704

REACTIONS (2)
  - Gastrointestinal stoma complication [Recovering/Resolving]
  - Drug ineffective [Recovering/Resolving]
